FAERS Safety Report 7692538-9 (Version None)
Quarter: 2011Q3

REPORT INFORMATION
  Report Type: 
  Country: None (occurrence: None)
  Receive Date: 20110819
  Receipt Date: 20110809
  Transmission Date: 20111222
  Serious: Yes (Other)
  Sender: FDA-Public Use
  Company Number: FR-MERCK-1108USA01483

PATIENT
  Age: 56 Year
  Sex: Male

DRUGS (18)
  1. OMEPRAZOLE [Concomitant]
     Route: 048
     Dates: start: 20110528
  2. VANCOMYCIN [Concomitant]
     Route: 065
     Dates: start: 20110425
  3. ACUPAN [Suspect]
     Indication: PAIN
     Route: 042
  4. AMLODIPINE BESYLATE [Concomitant]
     Route: 042
  5. PENTACARINAT [Concomitant]
     Route: 055
  6. CIPROFLOXACIN HCL [Suspect]
     Indication: INFECTION PROPHYLAXIS
     Route: 042
     Dates: start: 20110611
  7. MYCOSTATIN [Concomitant]
     Route: 065
     Dates: start: 20110425
  8. INNOHEP [Concomitant]
     Route: 058
  9. CELLCEPT [Suspect]
     Indication: STEM CELL TRANSPLANT
     Route: 048
     Dates: start: 20110501
  10. IDARAC [Concomitant]
     Route: 048
  11. VFEND [Suspect]
     Indication: INFECTION PROPHYLAXIS
     Route: 048
     Dates: start: 20110425
  12. GANCICLOVIR SODIUM [Suspect]
     Indication: INFECTION PROPHYLAXIS
     Route: 042
  13. NEORAL [Suspect]
     Indication: STEM CELL TRANSPLANT
     Route: 048
     Dates: start: 20110501
  14. GELOX (ALUMINUM HYDROXIDE (+) MAGNESIUM HYDROXIDE (+) SMECTITE) [Concomitant]
     Route: 048
  15. URSOLVAN [Concomitant]
     Route: 048
     Dates: start: 20110503
  16. PRIMAXIN [Suspect]
     Indication: INFECTION PROPHYLAXIS
     Route: 042
     Dates: start: 20110611
  17. IMOVANE [Concomitant]
     Route: 048
  18. KIOVIG [Concomitant]
     Route: 042

REACTIONS (1)
  - PETIT MAL EPILEPSY [None]
